FAERS Safety Report 6346304-7 (Version None)
Quarter: 2009Q3

REPORT INFORMATION
  Report Type: 
  Country: None (occurrence: None)
  Receive Date: 20090909
  Receipt Date: 20090901
  Transmission Date: 20100115
  Serious: Yes (Hospitalization)
  Sender: FDA-Public Use
  Company Number: JP-PFIZER INC-2009250822

PATIENT
  Age: 85 Year

DRUGS (10)
  1. ADRIACIN [Suspect]
     Indication: HEPATIC NEOPLASM MALIGNANT
     Dosage: 12 MG, UNK
     Route: 013
     Dates: start: 20041001, end: 20060401
  2. ADRIACIN [Suspect]
     Dosage: 12 MG, UNK
     Route: 013
     Dates: start: 20070921, end: 20070921
  3. MITOMYCIN [Suspect]
     Indication: HEPATIC NEOPLASM MALIGNANT
     Dosage: UNK
     Route: 013
     Dates: start: 20041001, end: 20060401
  4. MITOMYCIN [Suspect]
     Dosage: UNK
     Route: 013
     Dates: start: 20070921, end: 20070921
  5. LIPIODOL ULTRA-FLUID [Suspect]
     Indication: HEPATIC NEOPLASM MALIGNANT
     Dosage: 1.2 ML, UNK
     Route: 013
     Dates: start: 20041001, end: 20060401
  6. LIPIODOL ULTRA-FLUID [Suspect]
     Dosage: 1.2 ML, UNK
     Route: 013
     Dates: start: 20070921, end: 20070921
  7. GELATIN [Suspect]
     Indication: HEPATIC NEOPLASM MALIGNANT
     Dosage: UNK
     Route: 013
     Dates: start: 20041001, end: 20060401
  8. GELATIN [Suspect]
     Dosage: UNK
     Route: 013
     Dates: start: 20070921, end: 20070921
  9. ETHANOL [Concomitant]
     Dosage: UNK
     Route: 013
     Dates: start: 20041001, end: 20060401
  10. ACTOS [Concomitant]
     Dosage: 15 MG, 1X/DAY
     Route: 048

REACTIONS (5)
  - ABDOMINAL TENDERNESS [None]
  - HEPATIC NEOPLASM MALIGNANT RECURRENT [None]
  - LIVER ABSCESS [None]
  - PROCEDURAL SITE REACTION [None]
  - PYREXIA [None]
